FAERS Safety Report 10681892 (Version 1)
Quarter: 2014Q4

REPORT INFORMATION
  Report Type: Spontaneous
  Country: BS (occurrence: None)
  Receive Date: 20141229
  Receipt Date: 20141229
  Transmission Date: 20150529
  Serious: No
  Sender: FDA-Public Use
  Company Number: None

PATIENT
  Sex: Female
  Weight: 78.47 kg

DRUGS (1)
  1. RISPERDAL [Suspect]
     Active Substance: RISPERIDONE
     Indication: BIPOLAR DISORDER
     Dosage: EX. TWO PILLS
     Dates: start: 20141006, end: 20141215

REACTIONS (9)
  - Constipation [None]
  - Dizziness [None]
  - Somnolence [None]
  - Back pain [None]
  - Sluggishness [None]
  - Headache [None]
  - Amenorrhoea [None]
  - Weight increased [None]
  - Dry mouth [None]

NARRATIVE: CASE EVENT DATE: 20141215
